FAERS Safety Report 8987051 (Version 2)
Quarter: 2013Q1

REPORT INFORMATION
  Report Type: Spontaneous
  Country: US (occurrence: US)
  Receive Date: 20121227
  Receipt Date: 20130222
  Transmission Date: 20140127
  Serious: Yes (Hospitalization)
  Sender: FDA-Public Use
  Company Number: PHEH2012US025284

PATIENT
  Sex: Female

DRUGS (4)
  1. EXFORGE HCT [Suspect]
     Dosage: UNK UKN, UNK
  2. EXFORGE HCT [Suspect]
     Dosage: UNK UKN, UNK
  3. FISH OIL [Concomitant]
  4. ASPIRIN [Concomitant]

REACTIONS (2)
  - Diabetes mellitus [Unknown]
  - Gastrooesophageal reflux disease [Unknown]
